FAERS Safety Report 18661908 (Version 3)
Quarter: 2021Q1

REPORT INFORMATION
  Report Type: Spontaneous
  Country: US (occurrence: US)
  Receive Date: 20201224
  Receipt Date: 20210201
  Transmission Date: 20210419
  Serious: Yes (Hospitalization)
  Sender: FDA-Public Use
  Company Number: US-009507513-2012USA009639

PATIENT
  Age: 71 Year
  Sex: Female

DRUGS (3)
  1. BELSOMRA [Suspect]
     Active Substance: SUVOREXANT
     Indication: SLEEP DISORDER THERAPY
     Dosage: 10 MILLIGRAM, QD (1 PER DAY)
     Route: 048
     Dates: start: 202006
  2. PLAVIX [Suspect]
     Active Substance: CLOPIDOGREL BISULFATE
     Dosage: UNK
  3. ELIQUIS [Suspect]
     Active Substance: APIXABAN
     Dosage: UNK

REACTIONS (8)
  - Product blister packaging issue [Unknown]
  - Epistaxis [Recovered/Resolved]
  - Product quality issue [Unknown]
  - Product packaging quantity issue [Unknown]
  - Suspected product tampering [Unknown]
  - Poor quality product administered [Unknown]
  - Hypertension [Unknown]
  - Angiopathy [Unknown]

NARRATIVE: CASE EVENT DATE: 20201214
